FAERS Safety Report 13644055 (Version 1)
Quarter: 2017Q2

REPORT INFORMATION
  Report Type: Report from Study
  Country: None (occurrence: DO)
  Receive Date: 20170612
  Receipt Date: 20170612
  Transmission Date: 20170830
  Serious: Yes (Other)
  Sender: FDA-Public Use
  Company Number: DO-ABBVIE-17P-279-1994577-00

PATIENT
  Age: 39 Year
  Sex: Female

DRUGS (4)
  1. RITONAVIR. [Suspect]
     Active Substance: RITONAVIR
     Indication: HIV INFECTION
     Dosage: NOT STARTED PRIOR TO CONCEPTION, FIRST TRIMESTER EARLIEST EXPOSURE, ONGOING AT DELIVERY
     Route: 065
     Dates: start: 20170307
  2. REYATAZ [Concomitant]
     Active Substance: ATAZANAVIR SULFATE
     Indication: HIV INFECTION
     Dosage: NOT STARTED PRIOR TO CONCEPTION, FIRST TRIMESTER EARLIEST EXPOSURE, ONGOING AT DELIVERY
     Dates: start: 20170307
  3. BICTEGRAVIR/EMTRICITABINE/TAF [Concomitant]
     Indication: PRODUCT USED FOR UNKNOWN INDICATION
     Route: 065
     Dates: start: 20160628, end: 20170306
  4. TRUVADA [Concomitant]
     Active Substance: EMTRICITABINE\TENOFOVIR DISOPROXIL FUMARATE
     Indication: HIV INFECTION
     Dosage: NOT STARTED PRIOR TO CONCEPTION, FIRST TRIMESTER EARLIEST EXPOSURE, ONGOING AT DELIVERY
     Route: 048
     Dates: start: 20170307

REACTIONS (3)
  - Foetal death [Unknown]
  - Exposure during pregnancy [Unknown]
  - Abortion spontaneous [Unknown]

NARRATIVE: CASE EVENT DATE: 20170313
